FAERS Safety Report 5755333-3 (Version None)
Quarter: 2008Q2

REPORT INFORMATION
  Report Type: 
  Country: None (occurrence: None)
  Receive Date: 20080529
  Receipt Date: 20080529
  Transmission Date: 20081010
  Serious: Yes (Hospitalization, Other)
  Sender: FDA-Public Use
  Company Number: None

PATIENT
  Age: 48 Year
  Sex: Male
  Weight: 95.2554 kg

DRUGS (1)
  1. CYMBALTA [Suspect]
     Indication: STRESS
     Dosage: UP TO 120M WHICH WAS TOO MUCH  STAYED AT 90M FOR A YEAR DAILY
     Dates: start: 20060917, end: 20080214

REACTIONS (6)
  - EMOTIONAL DISTRESS [None]
  - MIGRAINE [None]
  - PAIN [None]
  - PLATELET COUNT DECREASED [None]
  - SOFT TISSUE INFLAMMATION [None]
  - VASCULITIS [None]
